FAERS Safety Report 14631043 (Version 8)
Quarter: 2018Q2

REPORT INFORMATION
  Report Type: Report from Study
  Country: CA (occurrence: CA)
  Receive Date: 20180313
  Receipt Date: 20180622
  Transmission Date: 20180711
  Serious: Yes (Other)
  Sender: FDA-Public Use
  Company Number: CA-HLSUS-2018-CA-000188

PATIENT
  Age: 30 Year
  Sex: Female
  Weight: 59 kg

DRUGS (5)
  1. CLOZARIL [Suspect]
     Active Substance: CLOZAPINE
     Dosage: 175MG AT BEDTIME
     Route: 048
     Dates: start: 20180108
  2. RISPERIDONE. [Concomitant]
     Active Substance: RISPERIDONE
  3. MELATONIN [Concomitant]
     Active Substance: MELATONIN
  4. WELLBUTRIN [Concomitant]
     Active Substance: BUPROPION HYDROCHLORIDE
  5. OLANZAPINE. [Concomitant]
     Active Substance: OLANZAPINE

REACTIONS (7)
  - Sedation [Unknown]
  - Ventricular extrasystoles [Unknown]
  - Electrocardiogram QT prolonged [Unknown]
  - Defect conduction intraventricular [Unknown]
  - Sinus tachycardia [Recovered/Resolved]
  - Fatigue [Unknown]
  - Electrocardiogram PR shortened [Unknown]

NARRATIVE: CASE EVENT DATE: 20180111
